FAERS Safety Report 5215491-6 (Version None)
Quarter: 2007Q1

REPORT INFORMATION
  Report Type: 
  Country: None (occurrence: None)
  Receive Date: 20070123
  Receipt Date: 20070111
  Transmission Date: 20070707
  Serious: Yes (Life-Threatening, Other)
  Sender: FDA-Public Use
  Company Number: US-JNJFOC-20070103887

PATIENT
  Sex: Female

DRUGS (1)
  1. HALDOL [Suspect]
     Indication: DRUG DISPENSING ERROR
     Dosage: 1 TABLET

REACTIONS (4)
  - DRUG DISPENSING ERROR [None]
  - DYSPNOEA [None]
  - MUSCLE TIGHTNESS [None]
  - THROAT TIGHTNESS [None]
